FAERS Safety Report 9642079 (Version 1)
Quarter: 2013Q4

REPORT INFORMATION
  Report Type: Spontaneous
  Country: US (occurrence: US)
  Receive Date: 20131023
  Receipt Date: 20131023
  Transmission Date: 20140711
  Serious: No
  Sender: FDA-Public Use
  Company Number: US-TEVA-438730USA

PATIENT
  Sex: Female

DRUGS (2)
  1. AZILECT [Suspect]
     Indication: PRODUCT USED FOR UNKNOWN INDICATION
  2. SINEMET [Suspect]

REACTIONS (2)
  - Back pain [Unknown]
  - Headache [Recovered/Resolved]
